FAERS Safety Report 24731264 (Version 1)
Quarter: 2024Q4

REPORT INFORMATION
  Report Type: Spontaneous
  Country: US (occurrence: US)
  Receive Date: 20241213
  Receipt Date: 20241213
  Transmission Date: 20250115
  Serious: No
  Sender: VIVUS
  Company Number: US-VIVUS, Inc.-2024V1000838

PATIENT
  Sex: Female
  Weight: 70.37 kg

DRUGS (2)
  1. PANCREAZE [Suspect]
     Active Substance: PANCRELIPASE AMYLASE\PANCRELIPASE LIPASE\PANCRELIPASE PROTEASE
     Indication: Whipple^s disease
     Dosage: 37,000/97,300/149,900 USP UNITS
     Route: 048
     Dates: start: 2021
  2. PANCREAZE [Suspect]
     Active Substance: PANCRELIPASE AMYLASE\PANCRELIPASE LIPASE\PANCRELIPASE PROTEASE
     Indication: Diarrhoea

REACTIONS (1)
  - Skin exfoliation [Not Recovered/Not Resolved]
